FAERS Safety Report 9326532 (Version 6)
Quarter: 2013Q4

REPORT INFORMATION
  Report Type: Spontaneous
  Country: NL (occurrence: None)
  Receive Date: 20130530
  Receipt Date: 20131115
  Transmission Date: 20140711
  Serious: Yes (Hospitalization)
  Sender: FDA-Public Use
  Company Number: SYM-2013-04201

PATIENT
  Age: 62 Year
  Sex: Female

DRUGS (13)
  1. 5 FU [Suspect]
     Indication: COLORECTAL CANCER METASTATIC
     Route: 040
     Dates: start: 20130319, end: 20130319
  2. AFLIBERCEPT [Suspect]
     Indication: COLORECTAL CANCER METASTATIC
     Dosage: INTRAVENOUS (NOT OTHERWISE SPECIFIED)?
     Route: 041
     Dates: start: 20130319, end: 20130319
  3. IRINOTECAN [Suspect]
     Indication: COLORECTAL CANCER METASTATIC
     Dosage: INTRAVENOUS (NOT OTHERWISE SPECIFIED)?
     Route: 041
     Dates: start: 20130319, end: 20130319
  4. LEUCOVORIN (FOLINIC ACID) (SOLUTION FOR INFUSION) (FOLINIC ACID) [Suspect]
     Indication: COLORECTAL CANCER METASTATIC
     Dosage: INTRAVENOUS (NOT OTHERWISE SPECIFIED)?
     Route: 041
     Dates: start: 20130319, end: 20130319
  5. TEMAZEPAM (TEMAZEPAM) (TEMAZEPAM) [Concomitant]
  6. NEXIUM [Concomitant]
  7. ANGIOTENSIN II ANTAGONISTS (ANGIOTENSIN II ANTAGONISTS AND DIURETICS) (NULL) [Concomitant]
  8. MOVICOLON (MEROKEN NEW) (SOIDUM BICARBONATE, POTASSIUM CHLORIDE, SODIUM CHLORIDE, MACROGOL) [Concomitant]
  9. GELCLAIR (GELCLAIR) (ENOXOLONE, POVIDONE, HYALURONATE SODIUM) [Concomitant]
  10. LOPERAMIDE (LOPERAMIDE) [Concomitant]
  11. PRAXITEN PLIVA (OXAZEPAM) (OXAZEPAM) [Concomitant]
  12. METOCLOPRAMIDE (METOCLOPRAMIDE) [Concomitant]
  13. LEVOTHYROXINE (LEVOTHYROXINE) [Concomitant]

REACTIONS (2)
  - Hypertension [None]
  - Headache [None]
